FAERS Safety Report 12056301 (Version 1)
Quarter: 2016Q1

REPORT INFORMATION
  Report Type: Spontaneous
  Country: US (occurrence: US)
  Receive Date: 20160210
  Receipt Date: 20160210
  Transmission Date: 20160526
  Serious: No
  Sender: FDA-Public Use
  Company Number: US-AMGEN-USASP2016012954

PATIENT

DRUGS (1)
  1. ENBREL [Suspect]
     Active Substance: ETANERCEPT
     Indication: PSORIATIC ARTHROPATHY
     Dosage: 50 ML, QWK
     Route: 065

REACTIONS (6)
  - Sleep disorder [Unknown]
  - Pain [Recovering/Resolving]
  - Burning sensation [Recovering/Resolving]
  - Drug ineffective [Unknown]
  - Visual impairment [Unknown]
  - Psoriasis [Recovering/Resolving]
